FAERS Safety Report 16690639 (Version 2)
Quarter: 2019Q3

REPORT INFORMATION
  Report Type: Other
  Country: ES (occurrence: ES)
  Receive Date: 20190811
  Receipt Date: 20190829
  Transmission Date: 20191004
  Serious: Yes (Other)
  Sender: FDA-Public Use
  Company Number: ES-DEXPHARM-20190593

PATIENT
  Age: 78 Year
  Sex: Female
  Weight: 60 kg

DRUGS (6)
  1. ICANDRA 2000/50 [Concomitant]
     Indication: DIABETES MELLITUS
     Dates: start: 20110101
  2. PARACETAMOL [Concomitant]
     Active Substance: ACETAMINOPHEN
     Indication: OSTEOARTHRITIS
     Dates: start: 20110101
  3. LOSARTAN/HCTZ [Interacting]
     Active Substance: HYDROCHLOROTHIAZIDE\LOSARTAN
     Indication: HYPERTENSION
     Dates: start: 20160513
  4. FORSTEO [Concomitant]
     Active Substance: TERIPARATIDE
     Indication: OSTEOPOROSIS
     Dates: start: 20160808
  5. OBITEN [Concomitant]
     Indication: DRY EYE
     Dates: start: 20170704
  6. OMEPRAZOLE. [Suspect]
     Active Substance: OMEPRAZOLE
     Indication: PEPTIC ULCER
     Dates: start: 20110101

REACTIONS (2)
  - Weight decreased [Unknown]
  - Drug interaction [Unknown]
